FAERS Safety Report 15172520 (Version 1)
Quarter: 2018Q3

REPORT INFORMATION
  Report Type: Spontaneous
  Country: IT (occurrence: IT)
  Receive Date: 20180720
  Receipt Date: 20180720
  Transmission Date: 20181010
  Serious: Yes (Hospitalization)
  Sender: FDA-Public Use
  Company Number: IT-TEVA-303581ISR

PATIENT
  Sex: Male

DRUGS (8)
  1. ENALAPRIL MALEATO [Suspect]
     Active Substance: ENALAPRIL MALEATE
     Route: 048
     Dates: start: 20080101, end: 20110501
  2. OMEPRAZOLO [Concomitant]
     Active Substance: OMEPRAZOLE
     Route: 048
  3. ASPIRIN. [Concomitant]
     Active Substance: ASPIRIN
     Route: 048
  4. CARVEDILOLO [Suspect]
     Active Substance: CARVEDILOL
     Dosage: 37.5 MILLIGRAM DAILY;
     Route: 048
     Dates: start: 20080101, end: 20110501
  5. INSULINA [Concomitant]
     Active Substance: INSULIN NOS
     Indication: TYPE 2 DIABETES MELLITUS
     Route: 065
  6. CRESTOR [Concomitant]
     Active Substance: ROSUVASTATIN CALCIUM
     Route: 065
  7. GLIBOMET [Concomitant]
     Active Substance: GLYBURIDE\METFORMIN HYDROCHLORIDE
     Route: 048
  8. NORVASC [Concomitant]
     Active Substance: AMLODIPINE BESYLATE
     Indication: HYPERTENSION
     Route: 048

REACTIONS (3)
  - Head injury [Recovered/Resolved]
  - Syncope [Recovered/Resolved]
  - Craniocerebral injury [Recovered/Resolved]

NARRATIVE: CASE EVENT DATE: 20110501
